FAERS Safety Report 6099542-5 (Version None)
Quarter: 2009Q1

REPORT INFORMATION
  Report Type: 
  Country: None (occurrence: None)
  Receive Date: 20090226
  Receipt Date: 20090224
  Transmission Date: 20090719
  Serious: Yes (Death, Hospitalization, Other)
  Sender: FDA-Public Use
  Company Number: 2008SP006433

PATIENT
  Sex: Male

DRUGS (3)
  1. TEMODAL [Suspect]
     Indication: GLIOBLASTOMA MULTIFORME
     Dosage: 150 MG/M2; QD; PO
     Route: 048
     Dates: start: 20070701
  2. TEMODAL [Suspect]
     Indication: GLIOBLASTOMA MULTIFORME
     Dosage: 150 MG/M2; QD; PO
     Route: 048
     Dates: start: 20080301
  3. INTERFERON [Suspect]
     Indication: DRUG USE FOR UNKNOWN INDICATION
     Dosage: 600 MIU; IV
     Route: 042

REACTIONS (4)
  - BONE MARROW FAILURE [None]
  - DISEASE PROGRESSION [None]
  - HEPATIC FUNCTION ABNORMAL [None]
  - PLATELET COUNT DECREASED [None]
